FAERS Safety Report 12565816 (Version 4)
Quarter: 2017Q3

REPORT INFORMATION
  Report Type: Spontaneous
  Country: GB (occurrence: GB)
  Receive Date: 20160718
  Receipt Date: 20170928
  Transmission Date: 20171127
  Serious: Yes (Hospitalization, Other)
  Sender: FDA-Public Use
  Company Number: GB-ELI_LILLY_AND_COMPANY-GB201607001260

PATIENT
  Age: 57 Year
  Sex: Female

DRUGS (14)
  1. ALIMTA [Suspect]
     Active Substance: PEMETREXED DISODIUM
     Indication: PRODUCT USED FOR UNKNOWN INDICATION
     Dosage: UNK, UNKNOWN
     Route: 065
  2. XGEVA [Suspect]
     Active Substance: DENOSUMAB
     Indication: PRODUCT USED FOR UNKNOWN INDICATION
     Dosage: UNK UNK, UNKNOWN
     Route: 058
  3. VITAMIN B12 [Concomitant]
     Active Substance: CYANOCOBALAMIN
     Dosage: UNK
     Route: 065
  4. CISPLATIN. [Concomitant]
     Active Substance: CISPLATIN
     Dosage: UNK, UNKNOWN
     Route: 065
  5. PEMETREXED. [Suspect]
     Active Substance: PEMETREXED
     Indication: PRODUCT USED FOR UNKNOWN INDICATION
     Dosage: 900 MG, UNKNOWN
     Route: 042
  6. ZOMETA [Concomitant]
     Active Substance: ZOLEDRONIC ACID
  7. BEVACIZUMAB. [Suspect]
     Active Substance: BEVACIZUMAB
     Indication: PRODUCT USED FOR UNKNOWN INDICATION
     Dosage: UNK, UNKNOWN
     Route: 065
  8. METOCLOPRAMID                      /00041901/ [Concomitant]
     Active Substance: METOCLOPRAMIDE
     Indication: PRODUCT USED FOR UNKNOWN INDICATION
     Dosage: 20 MG, UNKNOWN
     Route: 042
  9. ALCOHOL. [Suspect]
     Active Substance: ALCOHOL
     Indication: PRODUCT USED FOR UNKNOWN INDICATION
     Dosage: UNK UNK, UNKNOWN
     Route: 065
  10. AVASTIN                            /00848101/ [Suspect]
     Active Substance: SIMVASTATIN
     Indication: PRODUCT USED FOR UNKNOWN INDICATION
     Dosage: 600 MG, UNKNOWN
     Route: 042
  11. DEXAMETHASONE. [Concomitant]
     Active Substance: DEXAMETHASONE
  12. NEULASTA [Concomitant]
     Active Substance: PEGFILGRASTIM
  13. PROLIA [Suspect]
     Active Substance: DENOSUMAB
     Indication: PRODUCT USED FOR UNKNOWN INDICATION
     Dosage: UNK, UNKNOWN
     Route: 065
  14. APREPITANT. [Suspect]
     Active Substance: APREPITANT
     Indication: PRODUCT USED FOR UNKNOWN INDICATION
     Dosage: UNK, UNKNOWN
     Route: 065

REACTIONS (64)
  - Musculoskeletal stiffness [Unknown]
  - Thirst [Unknown]
  - Asthenia [Unknown]
  - Insomnia [Unknown]
  - Hypertension [Unknown]
  - Hot flush [Unknown]
  - Bone disorder [Unknown]
  - Musculoskeletal chest pain [Unknown]
  - Constipation [Not Recovered/Not Resolved]
  - Back pain [Unknown]
  - Tongue ulceration [Recovered/Resolved]
  - Lacrimation increased [Recovered/Resolved]
  - Weight decreased [Unknown]
  - Non-cardiac chest pain [Unknown]
  - Anxiety [Unknown]
  - Urinary tract obstruction [Unknown]
  - Flatulence [Unknown]
  - Decreased appetite [Recovered/Resolved]
  - Nausea [Unknown]
  - Tearfulness [Unknown]
  - Chest discomfort [Unknown]
  - Alopecia [Not Recovered/Not Resolved]
  - Haematuria [Unknown]
  - Breast discomfort [Unknown]
  - Musculoskeletal discomfort [Unknown]
  - Rash [Not Recovered/Not Resolved]
  - Pulmonary thrombosis [Unknown]
  - Dry mouth [Not Recovered/Not Resolved]
  - Erythema [Unknown]
  - Joint deposit [Unknown]
  - Speech disorder [Unknown]
  - Musculoskeletal stiffness [Recovering/Resolving]
  - Ageusia [Unknown]
  - Arthralgia [Recovering/Resolving]
  - Mouth ulceration [Recovered/Resolved]
  - Campylobacter infection [Unknown]
  - Rash macular [Unknown]
  - Chest pain [Unknown]
  - Oropharyngeal pain [Unknown]
  - Fatigue [Not Recovered/Not Resolved]
  - Abdominal pain upper [Unknown]
  - Diarrhoea [Unknown]
  - Confusional state [Not Recovered/Not Resolved]
  - Dry skin [Not Recovered/Not Resolved]
  - Dysgeusia [Unknown]
  - Sinusitis [Not Recovered/Not Resolved]
  - Feeding disorder [Unknown]
  - Paraesthesia [Recovered/Resolved]
  - Pain in extremity [Unknown]
  - Epistaxis [Unknown]
  - Viral infection [Unknown]
  - Dysphonia [Unknown]
  - Sleep disorder [Not Recovered/Not Resolved]
  - Neuropathy peripheral [Not Recovered/Not Resolved]
  - Haemoglobin decreased [Unknown]
  - Abdominal pain [Unknown]
  - Restlessness [Unknown]
  - Eating disorder [Unknown]
  - Headache [Unknown]
  - Pain in extremity [Not Recovered/Not Resolved]
  - Renal artery occlusion [Unknown]
  - Productive cough [Recovering/Resolving]
  - Arthropod bite [Unknown]
  - Cough [Not Recovered/Not Resolved]

NARRATIVE: CASE EVENT DATE: 20150716
